FAERS Safety Report 5747591-6 (Version None)
Quarter: 2008Q2

REPORT INFORMATION
  Report Type: 
  Country: None (occurrence: None)
  Receive Date: 20080523
  Receipt Date: 20080514
  Transmission Date: 20081010
  Serious: Yes (Life-Threatening)
  Sender: FDA-Public Use
  Company Number: SY-AVENTIS-200814218GDDC

PATIENT
  Sex: Female
  Weight: 105 kg

DRUGS (3)
  1. TAXOTERE [Suspect]
     Route: 042
     Dates: start: 20080416, end: 20080416
  2. TAXOTERE [Suspect]
     Route: 042
     Dates: start: 20080507, end: 20080507
  3. FARMORUBICINE                      /00699301/ [Concomitant]

REACTIONS (1)
  - HYPOXIA [None]
